FAERS Safety Report 6255133-4 (Version None)
Quarter: 2009Q3

REPORT INFORMATION
  Report Type: 
  Country: None (occurrence: None)
  Receive Date: 20090702
  Receipt Date: 20090623
  Transmission Date: 20100115
  Serious: Yes (Hospitalization, Other)
  Sender: FDA-Public Use
  Company Number: PHEH2009US04084

PATIENT
  Sex: Male

DRUGS (4)
  1. DIOVAN [Suspect]
     Indication: HYPERTENSION
     Dosage: 320 MG, QD
     Route: 048
     Dates: start: 20090420
  2. DIOVAN HCT [Suspect]
     Indication: HYPERTENSION
     Dosage: 320/25MG QD
     Route: 048
     Dates: start: 20090420
  3. NORVASC [Suspect]
     Dosage: 5 MG, UNK
  4. LISINOPRIL [Suspect]
     Dosage: 20 MG, UNK

REACTIONS (5)
  - ACCIDENTAL OVERDOSE [None]
  - BLOOD PRESSURE DECREASED [None]
  - BLOOD PRESSURE INCREASED [None]
  - HYPERHIDROSIS [None]
  - NAUSEA [None]
